FAERS Safety Report 13271960 (Version 1)
Quarter: 2017Q1

REPORT INFORMATION
  Report Type: Spontaneous
  Country: US (occurrence: US)
  Receive Date: 20170224
  Receipt Date: 20170224
  Transmission Date: 20170428
  Serious: Yes (Hospitalization, Other)
  Sender: FDA-Public Use
  Company Number: None

PATIENT
  Age: 78 Year
  Sex: Male
  Weight: 100 kg

DRUGS (2)
  1. KCENTRA [Suspect]
     Active Substance: COAGULATION FACTOR IX HUMAN\COAGULATION FACTOR VII HUMAN\COAGULATION FACTOR X HUMAN\PROTEIN C\PROTEIN S HUMAN\PROTHROMBIN
     Indication: RECTAL HAEMORRHAGE
     Dosage: ?          OTHER FREQUENCY:ONCE;?
     Route: 041
  2. KCENTRA [Suspect]
     Active Substance: COAGULATION FACTOR IX HUMAN\COAGULATION FACTOR VII HUMAN\COAGULATION FACTOR X HUMAN\PROTEIN C\PROTEIN S HUMAN\PROTHROMBIN
     Indication: INTERNATIONAL NORMALISED RATIO INCREASED
     Dosage: ?          OTHER FREQUENCY:ONCE;?
     Route: 041

REACTIONS (5)
  - Flushing [None]
  - Throat tightness [None]
  - Hypotension [None]
  - Tachycardia [None]
  - Angioedema [None]

NARRATIVE: CASE EVENT DATE: 20170219
